FAERS Safety Report 23585746 (Version 1)
Quarter: 2024Q1

REPORT INFORMATION
  Report Type: Spontaneous
  Country: GB (occurrence: GB)
  Receive Date: 20240301
  Receipt Date: 20240301
  Transmission Date: 20240409
  Serious: Yes (Hospitalization)
  Sender: FDA-Public Use
  Company Number: None

PATIENT
  Sex: Male

DRUGS (14)
  1. OLANZAPINE [Suspect]
     Active Substance: OLANZAPINE
     Dosage: EACH NIGHT?DAILY DOSE: 10 MILLIGRAM
     Dates: start: 20230130
  2. VENTOLIN [Concomitant]
     Active Substance: ALBUTEROL SULFATE
     Dosage: 100MICROGRAMS/DOSE EVOHALER (GLAXOSMITHKLINE UK LTD), ONE OR TWO PUFFS TO BE INHALED UP TO FOUR
  3. CALCIUM CARBONATE\CHOLECALCIFEROL [Concomitant]
     Active Substance: CALCIUM CARBONATE\CHOLECALCIFEROL
     Dosage: 1500MG/400UNIT?DAILY DOSE: 1 DOSAGE FORM
  4. BECLOMETHASONE DIPROPIONATE\FORMOTEROL FUMARATE\GLYCOPYRROLATE [Concomitant]
     Active Substance: BECLOMETHASONE DIPROPIONATE\FORMOTEROL FUMARATE\GLYCOPYRROLATE
     Dosage: 87MICROGRAMS/DOSE / 5MICROGRAMS/DOSE / 9MICROGRAMS/DOSE INHALER (CHIESI LTD), TWO PUFFS TO B
  5. ASPIRIN [Concomitant]
     Active Substance: ASPIRIN
     Dosage: DAILY DOSE: 75 MILLIGRAM
  6. OMEPRAZOLE [Concomitant]
     Active Substance: OMEPRAZOLE
     Dosage: DAILY DOSE: 20 MILLIGRAM
  7. LACTULOSE [Concomitant]
     Active Substance: LACTULOSE
     Dosage: 3.1-3.7G/5ML ORAL SOLUTION. TWICE A DAY PRN,?DAILY DOSE: 30 MILLILITRE
  8. DIAZEPAM [Concomitant]
     Active Substance: DIAZEPAM
     Dosage: AT 4PM IF NEEDED?DAILY DOSE: 2 MILLIGRAM
  9. RANOLAZINE [Concomitant]
     Active Substance: RANOLAZINE
     Dosage: DAILY DOSE: 500 MILLIGRAM
  10. VORTIOXETINE [Concomitant]
     Active Substance: VORTIOXETINE
     Dosage: DAILY DOSE: 10 MILLIGRAM
  11. FERROUS SULFATE [Concomitant]
     Active Substance: FERROUS SULFATE
     Dosage: DAILY DOSE: 200 MILLIGRAM
  12. SCOPOLAMINE HYDROBROMIDE [Concomitant]
     Active Substance: SCOPOLAMINE HYDROBROMIDE
     Dosage: IN THE MORNING?DAILY DOSE: 300 MILLIGRAM
  13. ACETAMINOPHEN [Concomitant]
     Active Substance: ACETAMINOPHEN
     Dosage: ONE TO BE TAKEN EVERY 4-6 HOURS UP TO FOUR TIMES A DAY,
  14. GLYCOPYRROLATE [Concomitant]
     Active Substance: GLYCOPYRROLATE
     Dosage: DAILY DOSE: 0.5 MILLILITRE

REACTIONS (6)
  - Parkinsonism [Recovered/Resolved]
  - Drooling [Unknown]
  - Unresponsive to stimuli [Unknown]
  - Pupil fixed [Unknown]
  - Eye disorder [Unknown]
  - Loss of consciousness [Unknown]

NARRATIVE: CASE EVENT DATE: 20231230
